FAERS Safety Report 6110587-9 (Version None)
Quarter: 2009Q1

REPORT INFORMATION
  Report Type: 
  Country: None (occurrence: None)
  Receive Date: 20090310
  Receipt Date: 20090303
  Transmission Date: 20090719
  Serious: Yes (Death, Other)
  Sender: FDA-Public Use
  Company Number: GR-ABBOTT-09P-066-0559984-00

PATIENT
  Age: 80 Year
  Sex: Female

DRUGS (2)
  1. KLARICID [Suspect]
     Indication: BRONCHITIS
  2. VASSOR [Interacting]
     Indication: DRUG USE FOR UNKNOWN INDICATION

REACTIONS (3)
  - DRUG INTERACTION [None]
  - RENAL FAILURE [None]
  - RHABDOMYOLYSIS [None]
